FAERS Safety Report 19548661 (Version 1)
Quarter: 2021Q3

REPORT INFORMATION
  Report Type: Spontaneous
  Country: US (occurrence: US)
  Receive Date: 20210714
  Receipt Date: 20210714
  Transmission Date: 20211014
  Serious: Yes (Death, Life-Threatening, Hospitalization)
  Sender: FDA-Public Use
  Company Number: US-MYLANLABS-2021M1042167

PATIENT
  Age: 68 Year
  Sex: Male

DRUGS (1)
  1. LIDOCAINE. [Suspect]
     Active Substance: LIDOCAINE
     Indication: PRODUCT USED FOR UNKNOWN INDICATION
     Dosage: RECOMMENDED TO RECEIVE PARENTERAL LIDOCAINE 5 MG/KG OVER 1 HOUR BUT HE MISTAKENLY RECEIVED 2G
     Route: 051

REACTIONS (5)
  - Incorrect dose administered [Fatal]
  - Cardiac arrest [Recovered/Resolved]
  - Accidental overdose [Fatal]
  - Toxicity to various agents [Fatal]
  - Trigeminal neuralgia [Not Recovered/Not Resolved]
